FAERS Safety Report 24125278 (Version 4)
Quarter: 2024Q4

REPORT INFORMATION
  Report Type: Report from Study
  Country: BE (occurrence: BE)
  Receive Date: 20240723
  Receipt Date: 20241004
  Transmission Date: 20250114
  Serious: Yes (Hospitalization)
  Sender: JOHNSON AND JOHNSON
  Company Number: BE-JNJFOC-20240703922

PATIENT
  Age: 60 Year
  Sex: Male
  Weight: 103 kg

DRUGS (20)
  1. TALQUETAMAB [Suspect]
     Active Substance: TALQUETAMAB
     Indication: Plasma cell myeloma refractory
     Route: 065
     Dates: start: 20240604
  2. DEXAMETHASONE [Concomitant]
     Active Substance: DEXAMETHASONE
  3. OMEPRAZOLE [Concomitant]
     Active Substance: OMEPRAZOLE
  4. VORICONAZOLE [Concomitant]
     Active Substance: VORICONAZOLE
  5. VORICONAZOLE [Concomitant]
     Active Substance: VORICONAZOLE
  6. BACTRIM [Concomitant]
     Active Substance: SULFAMETHOXAZOLE\TRIMETHOPRIM
     Dosage: 800/160 MG
  7. ACYCLOVIR [Concomitant]
     Active Substance: ACYCLOVIR
  8. RIVOTRIL [Concomitant]
     Active Substance: CLONAZEPAM
  9. ARANESP [Concomitant]
     Active Substance: DARBEPOETIN ALFA
  10. BEFACT FORTE [Concomitant]
  11. METFORMIN HYDROCHLORIDE [Concomitant]
     Active Substance: METFORMIN HYDROCHLORIDE
  12. ESCITALOPRAM OXALATE [Concomitant]
     Active Substance: ESCITALOPRAM OXALATE
  13. LYRICA [Concomitant]
     Active Substance: PREGABALIN
  14. LINAGLIPTIN [Concomitant]
     Active Substance: LINAGLIPTIN
  15. ALLOPURINOL [Concomitant]
     Active Substance: ALLOPURINOL
  16. GLICLAZIDE [Concomitant]
     Active Substance: GLICLAZIDE
  17. FUCICORT LIPID [Concomitant]
  18. EDOXABAN TOSYLATE [Concomitant]
     Active Substance: EDOXABAN TOSYLATE
  19. AUGMENTIN [Concomitant]
     Active Substance: AMOXICILLIN\CLAVULANATE POTASSIUM
     Dates: start: 20240625
  20. TRAMADOL HYDROCHLORIDE [Concomitant]
     Active Substance: TRAMADOL HYDROCHLORIDE
     Dosage: OD

REACTIONS (3)
  - Erysipelas [Not Recovered/Not Resolved]
  - Pyrexia [Recovered/Resolved]
  - Rash erythematous [Unknown]

NARRATIVE: CASE EVENT DATE: 20240628
